FAERS Safety Report 5334201-5 (Version None)
Quarter: 2007Q2

REPORT INFORMATION
  Report Type: 
  Country: None (occurrence: None)
  Receive Date: 20070525
  Receipt Date: 20060613
  Transmission Date: 20071010
  Serious: Yes (Other)
  Sender: FDA-Public Use
  Company Number: US-BAYER-200711620BCC

PATIENT
  Age: 75 Year
  Sex: Female
  Weight: 66 kg

DRUGS (3)
  1. NEO-SYNEPHRINE SPRAY [Suspect]
     Indication: HEADACHE
     Route: 045
     Dates: start: 20060508
  2. RITALIN [Concomitant]
  3. SYNTHROID [Concomitant]

REACTIONS (4)
  - CAUSTIC INJURY [None]
  - DYSPEPSIA [None]
  - EYE IRRITATION [None]
  - SINUS DISORDER [None]
